FAERS Safety Report 25209677 (Version 1)
Quarter: 2025Q2

REPORT INFORMATION
  Report Type: Report from Study
  Country: US (occurrence: US)
  Receive Date: 20250417
  Receipt Date: 20250417
  Transmission Date: 20250717
  Serious: Yes (Hospitalization, Other)
  Sender: ABBVIE
  Company Number: US-ABBVIE-6227077

PATIENT
  Age: 38 Year
  Sex: Male

DRUGS (1)
  1. CREON [Suspect]
     Active Substance: PANCRELIPASE AMYLASE\PANCRELIPASE LIPASE\PANCRELIPASE PROTEASE
     Indication: Product used for unknown indication
     Route: 048
     Dates: start: 20250302

REACTIONS (6)
  - Pneumonia [Unknown]
  - Gastrointestinal tube insertion [Unknown]
  - Pyrexia [Unknown]
  - Pleural effusion [Unknown]
  - Pancreatitis acute [Unknown]
  - Pancreatic cyst [Unknown]

NARRATIVE: CASE EVENT DATE: 20250101
